FAERS Safety Report 6839489-7 (Version None)
Quarter: 2010Q3

REPORT INFORMATION
  Report Type: 
  Country: None (occurrence: None)
  Receive Date: 20100714
  Receipt Date: 20091006
  Transmission Date: 20110219
  Serious: No
  Sender: FDA-Public Use
  Company Number: A0805186A

PATIENT
  Age: 70 Year
  Sex: Female

DRUGS (10)
  1. FLOVENT [Suspect]
     Indication: CHRONIC OBSTRUCTIVE PULMONARY DISEASE
     Dosage: 3PUFF TWICE PER DAY
     Route: 055
     Dates: start: 20081101
  2. SPIRIVA [Concomitant]
  3. ATROVENT [Concomitant]
  4. UNSPECIFIED MEDICATION [Concomitant]
  5. COREG [Concomitant]
  6. FOSAMAX [Concomitant]
  7. QUINAPRIL [Concomitant]
  8. EFFEXOR [Concomitant]
  9. OMEPRAZOLE [Concomitant]
  10. LASIX [Concomitant]

REACTIONS (2)
  - DYSPNOEA [None]
  - PRODUCT QUALITY ISSUE [None]
